FAERS Safety Report 4369315-X (Version None)
Quarter: 2004Q2

REPORT INFORMATION
  Report Type: 
  Country: None (occurrence: None)
  Receive Date: 20040528
  Receipt Date: 20040520
  Transmission Date: 20050107
  Serious: Yes (Hospitalization)
  Sender: FDA-Public Use
  Company Number: US-JNJFOC-20040504740

PATIENT
  Age: 71 Year
  Sex: Female
  Weight: 76.2043 kg

DRUGS (12)
  1. INFLIXIMAB  (INFLIXIMAB, RECOMBINANT) LYOPHILIZED POWDER [Suspect]
     Indication: RHEUMATOID ARTHRITIS
     Dosage: 400 MG, INTRAVENOUS
     Route: 042
     Dates: start: 20010308
  2. ALTACE [Concomitant]
  3. FOLIC ACID [Concomitant]
  4. PREMARIN [Concomitant]
  5. METHOTREXATE [Concomitant]
  6. IBUPROFEN [Concomitant]
  7. ASPIRIN [Concomitant]
  8. GUAIFENESIN (GUAIFENESIN) [Concomitant]
  9. VITAMIN E [Concomitant]
  10. CALCIUM + D (CALCIUM) [Concomitant]
  11. MULTIVITAMIN (MULTIVITAMIN) [Concomitant]
  12. TOBI [Concomitant]

REACTIONS (2)
  - ADENOCARCINOMA [None]
  - OVARIAN ADENOMA [None]
